FAERS Safety Report 7085957-5 (Version None)
Quarter: 2010Q4

REPORT INFORMATION
  Report Type: 
  Country: None (occurrence: None)
  Receive Date: 20101105
  Receipt Date: 20101027
  Transmission Date: 20110411
  Serious: Yes (Life-Threatening, Other)
  Sender: FDA-Public Use
  Company Number: LB-ACTELION-A-CH2010-40720

PATIENT
  Age: 76 Year
  Sex: Male
  Weight: 85 kg

DRUGS (14)
  1. TRACLEER [Suspect]
     Indication: PULMONARY ARTERIAL HYPERTENSION
     Dosage: UNK
     Route: 048
     Dates: start: 20100903, end: 20100917
  2. LASIX [Concomitant]
  3. ASPIRIN [Concomitant]
  4. TRENTAL [Concomitant]
  5. SERETIDE DISCUS [Concomitant]
  6. SPIRIVA [Concomitant]
  7. ALDACTONE [Concomitant]
  8. ALLOPURINOL [Concomitant]
  9. EXOMUC [Concomitant]
  10. VIAGRA [Concomitant]
  11. VENTOLIN [Concomitant]
  12. PARIET [Concomitant]
  13. TAPAZOL [Concomitant]
  14. OXYGEN [Concomitant]

REACTIONS (4)
  - ASTHENIA [None]
  - DRUG INTOLERANCE [None]
  - DYSPNOEA [None]
  - FATIGUE [None]
